FAERS Safety Report 4502398-2 (Version None)
Quarter: 2004Q4

REPORT INFORMATION
  Report Type: 
  Country: None (occurrence: None)
  Receive Date: 20041110
  Receipt Date: 20041026
  Transmission Date: 20050328
  Serious: Yes (Hospitalization)
  Sender: FDA-Public Use
  Company Number: S04-UKI-07236-01

PATIENT
  Sex: Male

DRUGS (5)
  1. CITALOPRAM HYDROBROMIDE [Suspect]
     Indication: DEPRESSION
     Dosage: 20 MG QD PO
     Route: 048
  2. CARBAMAZEPINE RETARD (CARBAMAZEPINE) [Concomitant]
  3. LAMOTRIGINE [Concomitant]
  4. LEVETIRACETAM [Concomitant]
  5. GABAPENTIN [Concomitant]

REACTIONS (3)
  - ASTHENIA [None]
  - LETHARGY [None]
  - MOVEMENT DISORDER [None]
